FAERS Safety Report 9583822 (Version 1)
Quarter: 2013Q4

REPORT INFORMATION
  Report Type: Spontaneous
  Country: US (occurrence: US)
  Receive Date: 20131002
  Receipt Date: 20131002
  Transmission Date: 20140711
  Serious: No
  Sender: FDA-Public Use
  Company Number: US-AMGEN-USASP2013049445

PATIENT
  Age: 61 Year
  Sex: Female
  Weight: 81.63 kg

DRUGS (1)
  1. ENBREL [Suspect]
     Indication: ANKYLOSING SPONDYLITIS
     Dosage: 50 MG, QWK
     Route: 058
     Dates: start: 20130510

REACTIONS (7)
  - Adverse event [Unknown]
  - Malaise [Unknown]
  - Cough [Unknown]
  - Throat irritation [Unknown]
  - Nausea [Unknown]
  - Hyperhidrosis [Unknown]
  - Viral infection [Unknown]
